FAERS Safety Report 6823843-3 (Version None)
Quarter: 2010Q3

REPORT INFORMATION
  Report Type: 
  Country: None (occurrence: None)
  Receive Date: 20100708
  Receipt Date: 20060911
  Transmission Date: 20110219
  Serious: No
  Sender: FDA-Public Use
  Company Number: US-PFIZER INC-2006112139

PATIENT
  Sex: Female
  Weight: 62.14 kg

DRUGS (13)
  1. CHANTIX [Suspect]
     Indication: SMOKING CESSATION THERAPY
     Route: 048
     Dates: start: 20060911
  2. LIPITOR [Concomitant]
     Route: 048
  3. AVAPRO [Concomitant]
     Route: 048
  4. LASIX [Concomitant]
     Route: 048
  5. UBIDECARENONE [Concomitant]
     Route: 048
  6. FEVERFEW [Concomitant]
     Route: 048
  7. APPLE CIDER VINEGAR [Concomitant]
     Route: 048
  8. FISH OIL [Concomitant]
     Route: 048
     Dates: end: 20060901
  9. BONIVA [Concomitant]
  10. ZYRTEC [Concomitant]
     Indication: MULTIPLE ALLERGIES
     Route: 048
  11. BENADRYL [Concomitant]
     Indication: MULTIPLE ALLERGIES
     Route: 048
  12. FLONASE [Concomitant]
  13. FLOVENT [Concomitant]

REACTIONS (1)
  - DIARRHOEA [None]
